FAERS Safety Report 19810094 (Version 1)
Quarter: 2021Q3

REPORT INFORMATION
  Report Type: Spontaneous
  Country: GB (occurrence: GB)
  Receive Date: 20210909
  Receipt Date: 20210909
  Transmission Date: 20211014
  Serious: Yes (Disabling, Other)
  Sender: FDA-Public Use
  Company Number: NVSC2021GB199938

PATIENT
  Age: 80 Year
  Sex: Female
  Weight: 76.2 kg

DRUGS (1)
  1. BISOPROLOL [Suspect]
     Active Substance: BISOPROLOL
     Indication: ILL-DEFINED DISORDER
     Dosage: 10 MG (LAST ADMINISTRATION WAS IN 2021)
     Route: 048
     Dates: start: 2018

REACTIONS (2)
  - Adverse drug reaction [Not Recovered/Not Resolved]
  - Medication error [Unknown]

NARRATIVE: CASE EVENT DATE: 2018
